FAERS Safety Report 7509415-6 (Version None)
Quarter: 2011Q2

REPORT INFORMATION
  Report Type: 
  Country: None (occurrence: None)
  Receive Date: 20110527
  Receipt Date: 20110428
  Transmission Date: 20111010
  Serious: No
  Sender: FDA-Public Use
  Company Number: US-BAYER-2011-037847

PATIENT
  Sex: Female
  Weight: 73 kg

DRUGS (6)
  1. ALEVE (CAPLET) [Suspect]
     Indication: ARTHRITIS
     Dosage: 1 DF, QD
     Route: 048
     Dates: start: 20110101, end: 20110101
  2. LISINOPRIL [Concomitant]
  3. VITAMIN D [Concomitant]
  4. ATENOLOL [Concomitant]
  5. VICODIN [Concomitant]
  6. LOVASTATIN [Concomitant]

REACTIONS (1)
  - NO ADVERSE EVENT [None]
